FAERS Safety Report 6912121-X (Version None)
Quarter: 2010Q3

REPORT INFORMATION
  Report Type: 
  Country: None (occurrence: None)
  Receive Date: 20100806
  Receipt Date: 20071217
  Transmission Date: 20110219
  Serious: No
  Sender: FDA-Public Use
  Company Number: US-PFIZER INC-2007106060

PATIENT
  Sex: Female
  Weight: 72.727 kg

DRUGS (2)
  1. DILANTIN [Suspect]
     Indication: CONVULSION
     Dates: start: 19650101
  2. PHENOBARBITAL [Concomitant]

REACTIONS (1)
  - DYSPEPSIA [None]
